FAERS Safety Report 11703130 (Version 1)
Quarter: 2015Q4

REPORT INFORMATION
  Report Type: Spontaneous
  Country: US (occurrence: US)
  Receive Date: 20151105
  Receipt Date: 20151105
  Transmission Date: 20160304
  Serious: No
  Sender: FDA-Public Use
  Company Number: US-AMGEN-USASP2015060136

PATIENT
  Sex: Male
  Weight: 1 kg

DRUGS (1)
  1. ARANESP [Suspect]
     Active Substance: DARBEPOETIN ALFA
     Indication: ANAEMIA NEONATAL
     Dosage: 11 MUG, UNK
     Route: 065
     Dates: start: 20150602

REACTIONS (2)
  - Drug ineffective [Unknown]
  - Off label use [Unknown]
